FAERS Safety Report 21228101 (Version 13)
Quarter: 2024Q3

REPORT INFORMATION
  Report Type: Report from Study
  Country: GB (occurrence: GB)
  Receive Date: 20220818
  Receipt Date: 20240726
  Transmission Date: 20241017
  Serious: Yes (Hospitalization, Other)
  Sender: MYLAN
  Company Number: GB-CELLTRION HEALTHCARE HUNGARY KFT-2022GB010821

PATIENT
  Age: 49 Year
  Sex: Male

DRUGS (79)
  1. DOXORUBICIN [Suspect]
     Active Substance: DOXORUBICIN
     Indication: B-cell lymphoma
     Dosage: 1 CYCLICAL, CYCLIC (6 CYCLE, RCHOP CHEMO -DOSE)
     Route: 065
     Dates: end: 20220512
  2. DOXORUBICIN [Suspect]
     Active Substance: DOXORUBICIN
     Dosage: UNK, CYCLIC (6 CYCLE, RCHOP CHEMO - DOSE)
     Route: 065
     Dates: end: 20220512
  3. DOXORUBICIN [Suspect]
     Active Substance: DOXORUBICIN
     Dosage: 6 CYCLE, RCHOP CHEMO - DOSE
     Route: 065
     Dates: end: 20220512
  4. DOXORUBICIN [Suspect]
     Active Substance: DOXORUBICIN
     Dosage: 6 CYCLE RCHOP CHEMO- DOSE
     Route: 065
     Dates: end: 20220512
  5. DOXORUBICIN [Suspect]
     Active Substance: DOXORUBICIN
     Dosage: MOST RECENT DOSE ON 12/MAY/2022
     Route: 065
     Dates: end: 20220512
  6. DOXORUBICIN [Suspect]
     Active Substance: DOXORUBICIN
     Dosage: RCHOP CHEMO
     Route: 065
     Dates: end: 20220512
  7. DOXORUBICIN [Suspect]
     Active Substance: DOXORUBICIN
     Dosage: DOSE:1, CYCLE/ RCHOP CHEMO - DOS
     Route: 065
     Dates: end: 20220512
  8. DOXORUBICIN [Suspect]
     Active Substance: DOXORUBICIN
     Dosage: 6 CYCLE, RCHOP CHEMO - DOSE, GASTRO RESISTANT
     Route: 065
     Dates: end: 20220512
  9. DOXORUBICIN [Suspect]
     Active Substance: DOXORUBICIN
     Dosage: 6 CYCLE, RCHOP CHEMO - DOSE
     Route: 065
     Dates: end: 20220512
  10. DOXORUBICIN [Suspect]
     Active Substance: DOXORUBICIN
     Dosage: CHOP CHEMO
     Route: 065
     Dates: end: 20220512
  11. DOXORUBICIN [Suspect]
     Active Substance: DOXORUBICIN
     Dosage: UNK
     Route: 065
     Dates: end: 20220512
  12. PREDNISOLONE [Suspect]
     Active Substance: PREDNISOLONE
     Indication: B-cell lymphoma
     Dosage: CYCLIC,6 CYCLE, RCHOP CHEMO-DOSE,GASTRO RESISTANT
     Route: 065
     Dates: end: 20220512
  13. PREDNISOLONE [Suspect]
     Active Substance: PREDNISOLONE
     Dosage: CYCLIC,6 CYCLE, RCHOP CHEMO-DOSE,GASTRO RESISTANT
     Route: 065
     Dates: end: 20220512
  14. PREDNISOLONE [Suspect]
     Active Substance: PREDNISOLONE
     Dosage: RCHOP CHEMO - DOSE AND EXACT ROUTE NOT
     Route: 065
     Dates: end: 20220512
  15. PREDNISOLONE [Suspect]
     Active Substance: PREDNISOLONE
     Dosage: CYCLIC (6 CYCLE, RCHOP CHEMO - DOSE)
     Route: 065
     Dates: end: 20220512
  16. PREDNISOLONE [Suspect]
     Active Substance: PREDNISOLONE
     Dosage: 6 CYCLE, RCHOP CHEMO - DOSE, GASTRO RESISTANT
     Route: 065
     Dates: end: 20220512
  17. PREDNISOLONE [Suspect]
     Active Substance: PREDNISOLONE
     Indication: B-cell lymphoma
     Dosage: 1C,6 CYCLE, RCHOP CHEMO-DOSE,GASTRO
     Route: 042
     Dates: end: 20220512
  18. PREDNISOLONE [Suspect]
     Active Substance: PREDNISOLONE
     Dosage: RCHOP CHEMO
     Route: 065
     Dates: end: 20220512
  19. PREDNISOLONE [Suspect]
     Active Substance: PREDNISOLONE
     Dosage: UNK (RCHOP CHEMO - DOSE AND EXACT R)
     Route: 065
  20. PREDNISOLONE [Suspect]
     Active Substance: PREDNISOLONE
     Dosage: UNK RCHOP CHEMO - DOSE AND EXACT ROUTE NOT KNOWN, ADDITIONAL INFORMATION ON DRUG (FREE TEXT): RCHOP
     Route: 065
     Dates: end: 20220512
  21. PREDNISOLONE [Suspect]
     Active Substance: PREDNISOLONE
     Dosage: UNK UNK, CYCLIC (6 CYCLE, RCHOP CHEMO - DOSE, GASTRO RESISTANT)
     Route: 065
     Dates: end: 20220512
  22. PREDNISOLONE [Suspect]
     Active Substance: PREDNISOLONE
     Dosage: UNK, CYCLIC (6 CYCLE, RCHOP CHEMO - DOSE, GASTRO RESISTANT)
     Route: 065
     Dates: end: 20220512
  23. PREDNISOLONE [Suspect]
     Active Substance: PREDNISOLONE
     Dosage: RCHOP CHEMO - DOSE AND EXACT ROUTE NOT KNOWNCYCLIC (6 CYCLE, RCHOP CHEMO - DOSE, GASTRO RESISTANT
     Route: 065
     Dates: end: 20220512
  24. PREDNISOLONE [Suspect]
     Active Substance: PREDNISOLONE
     Dosage: UNK UNK, CYCLIC (6 CYCLE, RCHOP CHEMO - DOSE)
     Route: 065
     Dates: end: 20220512
  25. PREDNISOLONE [Suspect]
     Active Substance: PREDNISOLONE
     Dosage: UNK UNK, CYCLIC (6 CYCLE, RCHOP CHEMO - DOSE AND EXACT ROUTE NOT KNOWN)
     Route: 065
     Dates: end: 20220512
  26. PREDNISOLONE [Suspect]
     Active Substance: PREDNISOLONE
     Dosage: CYCLIC,6 CYCLE, RCHOP CHEMO-DOSE,GASTRO RESISTANT (RCHOP CHEMO - DOSE AND EXACT ROUTE NOT KNOWN.)
     Route: 065
     Dates: end: 20220512
  27. PREDNISOLONE [Suspect]
     Active Substance: PREDNISOLONE
     Dosage: UNK (RCHOP CHEMO, 6 CYCLES- DOSE AND EXACT ROUTE NOT KNOWN)
     Route: 065
     Dates: end: 20220512
  28. PREDNISOLONE [Suspect]
     Active Substance: PREDNISOLONE
     Dosage: UNK UNK, CYCLIC (6 CYCLE, RCHOP CHEMO - DOSE AND EXACT ROUTE NOT KNOWN, CYCLIC (6 CYCLE,
     Route: 065
     Dates: end: 20220512
  29. PREDNISOLONE [Suspect]
     Active Substance: PREDNISOLONE
     Dosage: UNK, CYCLIC (1 CYCLICAL, 6 CYCLE, RCHOP CHEMO-DOSE, GASTRO)
     Route: 065
  30. PREDNISOLONE [Suspect]
     Active Substance: PREDNISOLONE
     Dosage: RCHOP CHEMO
     Route: 065
     Dates: end: 20220512
  31. PREDNISOLONE [Suspect]
     Active Substance: PREDNISOLONE
     Dosage: RCHOP CHEMO, MOST RECENT DOSE ON 12-MAY-2022, ADDITIONAL INFORMATION ON DRUG (FREE TEXT): RCHOP CHEM
     Route: 065
     Dates: end: 20220512
  32. PREDNISOLONE [Suspect]
     Active Substance: PREDNISOLONE
     Dosage: UNK. UNK, CYCLIC
     Route: 065
     Dates: end: 20220512
  33. PREDNISOLONE [Suspect]
     Active Substance: PREDNISOLONE
     Dosage: UNK UNK, CYCLIC (6 CYCLE, RCHOP CHEMO - DOSE)
     Route: 065
     Dates: end: 20220512
  34. PREDNISOLONE [Suspect]
     Active Substance: PREDNISOLONE
     Dosage: CYCLIC (6 CYCLE, RCHOP CHEMO - DOSE)
     Route: 065
     Dates: end: 20220512
  35. PREDNISOLONE [Suspect]
     Active Substance: PREDNISOLONE
     Dosage: UNK UNK, CYCLIC (6 CYCLE, RCHOP CHEMO - DOSE)
     Route: 065
     Dates: end: 20220512
  36. PREDNISOLONE [Suspect]
     Active Substance: PREDNISOLONE
     Dosage: 6 CYCLE, RCHOP CHEMO - DOSE, GASTRO RESISTANT
     Route: 065
     Dates: end: 20220512
  37. PREDNISOLONE [Suspect]
     Active Substance: PREDNISOLONE
     Indication: B-cell lymphoma
     Dosage: RCHOP CHEMO - DOSE AND EXACT R
     Route: 065
     Dates: end: 20220512
  38. PREDNISOLONE [Suspect]
     Active Substance: PREDNISOLONE
     Dosage: 6 CYCLE, RCHOP CHEMO - DOSE
     Route: 065
     Dates: end: 20220512
  39. PREDNISOLONE [Suspect]
     Active Substance: PREDNISOLONE
     Dosage: 6 CYCLE, RCHOP CHEMO - DOSE, GASTRO RESISTANT
     Route: 065
     Dates: end: 20220512
  40. PREDNISOLONE [Suspect]
     Active Substance: PREDNISOLONE
     Dosage: 6CYCLE, RCHOP CHEMO - DOSE, GASTRO RESISTAN
     Route: 065
     Dates: end: 20220512
  41. PREDNISOLONE [Suspect]
     Active Substance: PREDNISOLONE
     Dosage: 6CYCLE, RCHOPCHEMO - DOSE, GASTRO RESISTAN
     Route: 065
     Dates: end: 20220512
  42. PREDNISOLONE [Suspect]
     Active Substance: PREDNISOLONE
     Dosage: 6CYCLE,RCHOP CHEMO - DOSE, GASTRO RESISTAN
     Route: 065
     Dates: end: 20220512
  43. PREDNISOLONE [Suspect]
     Active Substance: PREDNISOLONE
     Dosage: RCHOP CHEMO; ADDITIONAL INFO: ROUTE:UNKNOWN ROUTE:UNKNOWN ROUTE:UNKNOWN ROUTE:UNKNOWN ROUTE:UNKNOWNR
     Route: 065
     Dates: end: 20220512
  44. PREDNISOLONE [Suspect]
     Active Substance: PREDNISOLONE
     Dosage: RCHOP CHEMO, MOST RECENT DOSE ON 12/MAY/2022
     Route: 065
     Dates: end: 20220512
  45. PREDNISOLONE [Suspect]
     Active Substance: PREDNISOLONE
     Dosage: UNK, CYCLIC (6 CYCLE, RCHOP CHEMO - DOSE, GASTRO RESISTANT); ; ADDITIONAL INFO: ROUTE:UNKNOWN ROUTE:
     Route: 065
     Dates: end: 20220512
  46. PREDNISOLONE [Suspect]
     Active Substance: PREDNISOLONE
     Dosage: RCHOP CHEMO - DOSE AND EXACT ROUTE NOT KNOWN. ADDITIONAL INFO: ROUTE:UNKNOWN ROUTE:UNKNOWN ROUTE:UNK
     Route: 065
     Dates: end: 20220512
  47. PREDNISOLONE [Suspect]
     Active Substance: PREDNISOLONE
     Dosage: ADDITIONAL INFO: ROUTE:UNKNOWN ROUTE:UNKNOWN ROUTE:UNKNOWN ROUTE:UNKNOWN ROUTE:UNKNOWNRCHOP CHEMO...
     Route: 065
     Dates: end: 20220512
  48. PREDNISOLONE [Suspect]
     Active Substance: PREDNISOLONE
     Dosage: UNK (RCHOP CHEMO - DOSE AND EXACT ROUTE NOT KNOWN.)
     Route: 065
     Dates: end: 20220512
  49. PREDNISOLONE [Suspect]
     Active Substance: PREDNISOLONE
     Dosage: UNK, CYCLIC (6 CYCLE, RCHOP CHEMO - DOSE, GASTRO RESISTANT)
     Route: 065
     Dates: end: 20220512
  50. PREDNISOLONE [Suspect]
     Active Substance: PREDNISOLONE
     Dosage: UNK RCHOP CHEMO, 6 CYCLES- DOSE AND EXACT ROUTE NOT KNOWN; ; ADDITIONAL INFO: ROUTE:UNKNOWN ROUTE:UN
     Route: 065
     Dates: end: 20220512
  51. PREDNISOLONE [Suspect]
     Active Substance: PREDNISOLONE
     Dosage: UNK, CYCLIC (6 CYCLE, RCHOP CHEMO - DOSE, GASTRO RESISTANT
     Route: 065
     Dates: end: 20220512
  52. PREDNISOLONE [Suspect]
     Active Substance: PREDNISOLONE
     Dosage: UNK, CYCLIC (6 CYCLE, RCHOP CHEMO - DOSE, GASTRO RESISTANT); ; ADDITIONAL INFO: ROUTE:UNKNOWN ROUTE:
     Route: 065
     Dates: end: 20220512
  53. CYCLOPHOSPHAMIDE [Suspect]
     Active Substance: CYCLOPHOSPHAMIDE
     Indication: B-cell lymphoma
     Dosage: UNK, CYCLIC (6 CYCLE, RCHOP CHEMO - DOSE)
     Route: 065
     Dates: end: 20220512
  54. CYCLOPHOSPHAMIDE [Suspect]
     Active Substance: CYCLOPHOSPHAMIDE
     Dosage: RCHOP CHEMO
     Route: 065
     Dates: end: 20220512
  55. CYCLOPHOSPHAMIDE [Suspect]
     Active Substance: CYCLOPHOSPHAMIDE
     Dosage: 6 CYCLE, RCHOP CHEMO - DOSE
     Route: 065
     Dates: end: 20220512
  56. CYCLOPHOSPHAMIDE [Suspect]
     Active Substance: CYCLOPHOSPHAMIDE
     Dosage: 6 CYCLE, RCHOP CHEMO - DOSE
     Route: 065
     Dates: end: 20220512
  57. CYCLOPHOSPHAMIDE [Suspect]
     Active Substance: CYCLOPHOSPHAMIDE
     Dosage: 6 CYCLE, RCHOP CHEMO - DOSE
     Route: 065
     Dates: end: 20220512
  58. CYCLOPHOSPHAMIDE [Suspect]
     Active Substance: CYCLOPHOSPHAMIDE
     Dosage: RCHOP CHEMO - DOSE AND EXACT RO
     Route: 065
     Dates: end: 20220512
  59. CYCLOPHOSPHAMIDE [Suspect]
     Active Substance: CYCLOPHOSPHAMIDE
     Dosage: RCHOP CHEMO;
     Route: 065
     Dates: end: 20220512
  60. CYCLOPHOSPHAMIDE [Suspect]
     Active Substance: CYCLOPHOSPHAMIDE
     Dosage: RCHOP CHEMO - DOSE AND EXACT ROUTE N
     Route: 065
     Dates: end: 20220512
  61. CYCLOPHOSPHAMIDE [Suspect]
     Active Substance: CYCLOPHOSPHAMIDE
     Dosage: 6 CYCLE, RCHOP CHEMO - DOSE
     Route: 065
     Dates: end: 20220512
  62. CYCLOPHOSPHAMIDE [Suspect]
     Active Substance: CYCLOPHOSPHAMIDE
     Dosage: 6 CYCLE, RCHOP CHEMO - DOSE
     Route: 065
     Dates: end: 20220512
  63. VINCRISTINE [Suspect]
     Active Substance: VINCRISTINE
     Indication: B-cell lymphoma
     Dosage: 1, CYCLICAL, 6 CYCLE, RCHOP CHEMO-DOSE,GASTRO
     Route: 065
     Dates: end: 20220512
  64. VINCRISTINE [Suspect]
     Active Substance: VINCRISTINE
     Dosage: UNK, CYCLIC (6 CYCLE, RCHOP CHEMO - DOSE
     Route: 065
     Dates: end: 20220512
  65. VINCRISTINE [Suspect]
     Active Substance: VINCRISTINE
     Dosage: UNK (RCHOP CHEMO - DOSE AND EXACT ROUTE NOT)
     Route: 065
     Dates: end: 20220512
  66. VINCRISTINE [Suspect]
     Active Substance: VINCRISTINE
     Dosage: (6 CYCLE, RCHOP CHEMO - DOSE, GASTRO RESISTANT)
     Route: 065
     Dates: end: 20220512
  67. VINCRISTINE [Suspect]
     Active Substance: VINCRISTINE
     Dosage: RCHOP CHEMO
     Route: 065
     Dates: end: 20220512
  68. VINCRISTINE [Suspect]
     Active Substance: VINCRISTINE
     Dosage: RCHOP CHEMO
     Route: 065
     Dates: end: 20220512
  69. VINCRISTINE [Suspect]
     Active Substance: VINCRISTINE
     Dosage: UNK UNK, CYCLIC (6 CYCLE RCHOP CHEMO DOSE,
     Route: 065
     Dates: end: 20220512
  70. VINCRISTINE [Suspect]
     Active Substance: VINCRISTINE
     Dosage: UNK, CYCLIC (6 CYCLE, RCHOP CHEMO - DOSE,
     Route: 065
     Dates: end: 20220512
  71. RITUXIMAB [Suspect]
     Active Substance: RITUXIMAB
     Indication: B-cell lymphoma
     Dosage: CYCLIC (6 CYCLE, RCHOP CHEMO - DOSE)
     Route: 042
     Dates: end: 20220512
  72. RITUXIMAB [Suspect]
     Active Substance: RITUXIMAB
     Dosage: 6 CYCLE, RCHOP CHEMO - DOSE
     Route: 042
     Dates: end: 20220512
  73. RITUXIMAB [Suspect]
     Active Substance: RITUXIMAB
     Dosage: CYCLIC (6 CYCLE, RCHOP CHEMO - DOSE)
     Route: 042
     Dates: end: 20220512
  74. RITUXIMAB [Suspect]
     Active Substance: RITUXIMAB
     Dosage: CYCLIC (6 CYCLE, RCHOP CHEMO - DOSE)
     Route: 042
     Dates: end: 20220512
  75. RITUXIMAB [Suspect]
     Active Substance: RITUXIMAB
     Dosage: RCHOP CHEMO - DOSE AND EX
     Route: 042
     Dates: end: 20220512
  76. RITUXIMAB [Suspect]
     Active Substance: RITUXIMAB
     Dosage: RCHOP CHEMO - DOSE AND EXACT RO
     Route: 042
     Dates: end: 20220512
  77. RITUXIMAB [Suspect]
     Active Substance: RITUXIMAB
     Dosage: CYCLIC (6 CYCLE, RCHOP CHEMO - DOSE);
     Route: 042
     Dates: end: 20220512
  78. RITUXIMAB [Suspect]
     Active Substance: RITUXIMAB
     Dosage: RCHOP CHEMO
     Route: 042
     Dates: end: 20220512
  79. RITUXIMAB [Suspect]
     Active Substance: RITUXIMAB
     Indication: B-cell lymphoma
     Dosage: MOST RECENT DOSE ON 12/MAY/2022.
     Route: 065
     Dates: end: 20220512

REACTIONS (10)
  - Cerebellar syndrome [Unknown]
  - Confusional state [Unknown]
  - Dysarthria [Unknown]
  - Lethargy [Unknown]
  - Back pain [Unknown]
  - Balance disorder [Unknown]
  - Abnormal behaviour [Unknown]
  - Condition aggravated [Unknown]
  - Disease progression [Unknown]
  - Off label use [Unknown]

NARRATIVE: CASE EVENT DATE: 20220514
